FAERS Safety Report 8966122 (Version 1)
Quarter: 2012Q4

REPORT INFORMATION
  Report Type: Report from Study
  Country: VE (occurrence: VE)
  Receive Date: 20121217
  Receipt Date: 20121217
  Transmission Date: 20130627
  Serious: Yes (Hospitalization)
  Sender: FDA-Public Use
  Company Number: VE-ABBOTT-12P-178-1021449-00

PATIENT
  Sex: Male

DRUGS (2)
  1. HUMIRA [Suspect]
     Indication: RHEUMATOID ARTHRITIS
     Route: 058
     Dates: start: 2009, end: 2010
  2. HUMIRA [Suspect]
     Route: 058
     Dates: start: 2010, end: 201108

REACTIONS (4)
  - Femur fracture [Recovered/Resolved with Sequelae]
  - Diverticulitis [Recovered/Resolved]
  - Peritonitis [Recovered/Resolved]
  - Femur fracture [Recovered/Resolved with Sequelae]
